FAERS Safety Report 19305048 (Version 1)
Quarter: 2021Q2

REPORT INFORMATION
  Report Type: Spontaneous
  Country: JP (occurrence: JP)
  Receive Date: 20210526
  Receipt Date: 20210526
  Transmission Date: 20210717
  Serious: Yes (Other)
  Sender: FDA-Public Use
  Company Number: JP-TAKEDA-2021TJP027627

PATIENT
  Age: 38 Year
  Sex: Male

DRUGS (1)
  1. AGRYLIN [Suspect]
     Active Substance: ANAGRELIDE HYDROCHLORIDE
     Indication: ESSENTIAL THROMBOCYTHAEMIA
     Dosage: 1 MILLIGRAM /DAY
     Route: 048
     Dates: start: 20210308, end: 20210319

REACTIONS (1)
  - Chronic myeloid leukaemia [Recovered/Resolved]

NARRATIVE: CASE EVENT DATE: 20210319
